FAERS Safety Report 10376065 (Version 2)
Quarter: 2014Q3

REPORT INFORMATION
  Report Type: Spontaneous
  Country: US (occurrence: US)
  Receive Date: 20140811
  Receipt Date: 20140909
  Transmission Date: 20150326
  Serious: Yes (Death)
  Sender: FDA-Public Use
  Company Number: US-FRI-1000069613

PATIENT
  Age: 80 Year
  Sex: Female
  Weight: 52.16 kg

DRUGS (4)
  1. NAMENDA [Suspect]
     Active Substance: MEMANTINE HYDROCHLORIDE
     Indication: DEMENTIA ALZHEIMER^S TYPE
     Dates: start: 201110, end: 201211
  2. NAMENDA [Suspect]
     Active Substance: MEMANTINE HYDROCHLORIDE
     Dosage: 10 MG
     Dates: start: 201211, end: 201309
  3. NAMENDA [Suspect]
     Active Substance: MEMANTINE HYDROCHLORIDE
     Dosage: 20 MG
     Dates: start: 201309
  4. NAMENDA [Suspect]
     Active Substance: MEMANTINE HYDROCHLORIDE
     Dosage: 10 MG IN AM; 5 MG IN PM

REACTIONS (1)
  - Death [Fatal]

NARRATIVE: CASE EVENT DATE: 20140615
